FAERS Safety Report 4612588-6 (Version None)
Quarter: 2005Q1

REPORT INFORMATION
  Report Type: 
  Country: None (occurrence: None)
  Receive Date: 20050318
  Receipt Date: 20050314
  Transmission Date: 20050727
  Serious: Yes (Other)
  Sender: FDA-Public Use
  Company Number: 200512392GDDC

PATIENT
  Age: 46 Year
  Sex: Male

DRUGS (4)
  1. LANTUS [Suspect]
     Indication: DIABETES MELLITUS
     Dosage: DOSE UNIT: UNITS
     Route: 058
     Dates: start: 20050201
  2. CALCIUM GLUCONATE [Concomitant]
     Route: 048
  3. HUMALOG [Concomitant]
     Indication: DIABETES MELLITUS
     Dosage: DOSE: 3-4; FREQUENCY: BEFORE MEALS; DOSE UNIT: UNITS
     Route: 058
  4. FISH OIL [Concomitant]
     Route: 048

REACTIONS (2)
  - BLOOD POTASSIUM INCREASED [None]
  - DIABETES MELLITUS INADEQUATE CONTROL [None]
